FAERS Safety Report 8397703-3 (Version None)
Quarter: 2012Q2

REPORT INFORMATION
  Report Type: 
  Country: None (occurrence: None)
  Receive Date: 20120531
  Receipt Date: 20120523
  Transmission Date: 20120825
  Serious: Yes (Hospitalization)
  Sender: FDA-Public Use
  Company Number: US-BAYER-2012-014779

PATIENT
  Age: 13 Year
  Sex: Female
  Weight: 68.027 kg

DRUGS (26)
  1. YAZ [Suspect]
     Indication: MENSTRUAL CYCLE MANAGEMENT
  2. DROSPIRENONE AND ETHINYL ESTRADIOL [Suspect]
     Indication: ACNE
     Dosage: UNK
     Dates: start: 20090110, end: 20091101
  3. BENTYL [Concomitant]
     Dosage: 20 MG, QD
     Route: 048
  4. LIDOCAINE HCL VISCOUS [Concomitant]
     Dosage: 1 TBS AS NEEDED
  5. ANTIBIOTICS [Concomitant]
  6. YAZ [Suspect]
  7. YASMIN [Suspect]
     Indication: MENSTRUAL CYCLE MANAGEMENT
  8. PEPCID [Concomitant]
     Dosage: 20 MG, QD
     Route: 048
  9. AMITRIPTYLINE HCL [Concomitant]
     Dosage: 25 MG, QD
  10. YASMIN [Suspect]
     Indication: ACNE
  11. VENTOLIN [Concomitant]
     Dosage: 1 PUFF(S), Q4HR
  12. DIFLUCAN [Concomitant]
     Route: 048
  13. CEFDINIR [Concomitant]
     Route: 048
  14. DROSPIRENONE AND ETHINYL ESTRADIOL [Suspect]
     Indication: PREMENSTRUAL SYNDROME
  15. DROSPIRENONE AND ETHINYL ESTRADIOL [Suspect]
     Indication: MENSTRUAL CYCLE MANAGEMENT
  16. NEXIUM [Concomitant]
     Dosage: 40 MG DAILY
     Route: 048
  17. CLARITIN [Concomitant]
     Dosage: 10 MG, QD
  18. YAZ [Suspect]
     Indication: ACNE
  19. YASMIN [Suspect]
     Indication: PREMENSTRUAL SYNDROME
  20. YASMIN [Suspect]
  21. LORATADINE [Concomitant]
     Dosage: 10 MG, QD
     Route: 048
  22. FLUTICASONE PROPIONATE [Concomitant]
     Dosage: 1 SPRAY DAILY
     Route: 045
  23. YAZ [Suspect]
     Indication: PREMENSTRUAL SYNDROME
  24. DROSPIRENONE AND ETHINYL ESTRADIOL [Suspect]
  25. CARAFATE [Concomitant]
     Dosage: 1 G, QID
  26. DICYCLOMINE [Concomitant]
     Dosage: 20 MG EVERY 6 HOURS AS NEEDED
     Route: 048

REACTIONS (5)
  - CHOLECYSTITIS CHRONIC [None]
  - GALLBLADDER DISORDER [None]
  - MENTAL DISORDER [None]
  - PAIN [None]
  - ABDOMINAL PAIN [None]
